FAERS Safety Report 6285514-4 (Version None)
Quarter: 2009Q3

REPORT INFORMATION
  Report Type: 
  Country: None (occurrence: None)
  Receive Date: 20090716
  Receipt Date: 20090422
  Transmission Date: 20100115
  Serious: Yes (Other)
  Sender: FDA-Public Use
  Company Number: 2009BI009744

PATIENT
  Age: 42 Year
  Sex: Female

DRUGS (3)
  1. AVONEX [Suspect]
     Indication: MULTIPLE SCLEROSIS
     Dosage: 30 UG;QW;IM
     Route: 030
     Dates: start: 19970101
  2. COPAXONE [Concomitant]
  3. PREV MEDS [Concomitant]

REACTIONS (7)
  - BALANCE DISORDER [None]
  - CONVULSION [None]
  - COORDINATION ABNORMAL [None]
  - FATIGUE [None]
  - MEMORY IMPAIRMENT [None]
  - MOBILITY DECREASED [None]
  - THYROID DISORDER [None]
